FAERS Safety Report 23932290 (Version 2)
Quarter: 2025Q2

REPORT INFORMATION
  Report Type: Spontaneous
  Country: PT (occurrence: PT)
  Receive Date: 20240603
  Receipt Date: 20250612
  Transmission Date: 20250717
  Serious: Yes (Other)
  Sender: AUROBINDO
  Company Number: PT-AUROBINDO-AUR-APL-2024-025649

PATIENT
  Age: 75 Year
  Sex: Male

DRUGS (3)
  1. LIDOCAINE [Suspect]
     Active Substance: LIDOCAINE
     Indication: Epidural analgesia
     Route: 008
  2. ROPIVACAINE [Suspect]
     Active Substance: ROPIVACAINE
     Indication: Epidural analgesia
     Route: 008
  3. SUFENTANIL [Suspect]
     Active Substance: SUFENTANIL
     Indication: Epidural analgesia
     Route: 008

REACTIONS (1)
  - Diplegia [Unknown]
